FAERS Safety Report 10945990 (Version 1)
Quarter: 2015Q1

REPORT INFORMATION
  Report Type: Spontaneous
  Country: US (occurrence: None)
  Receive Date: 20150212
  Receipt Date: 20150212
  Transmission Date: 20150721
  Serious: Yes (Hospitalization)
  Sender: FDA-Public Use
  Company Number: TPA2011A07595

PATIENT
  Sex: Female

DRUGS (2)
  1. ULORIC [Suspect]
     Active Substance: FEBUXOSTAT
     Dosage: 80 MG, 1 IN 1 D, PER ORAL
     Route: 048
  2. UNKNOWN NSAID (NSAID^S) [Concomitant]

REACTIONS (2)
  - Blood creatinine increased [None]
  - Blood urea nitrogen/creatinine ratio increased [None]
